FAERS Safety Report 12411658 (Version 1)
Quarter: 2016Q2

REPORT INFORMATION
  Report Type: Spontaneous
  Country: US (occurrence: US)
  Receive Date: 20160527
  Receipt Date: 20160527
  Transmission Date: 20160815
  Serious: Yes (Other)
  Sender: FDA-Public Use
  Company Number: US-BEH-2016063044

PATIENT
  Sex: Female

DRUGS (1)
  1. HIZENTRA [Suspect]
     Active Substance: HUMAN IMMUNOGLOBULIN G
     Indication: PRODUCT USED FOR UNKNOWN INDICATION

REACTIONS (11)
  - Meningitis [Unknown]
  - Rotator cuff syndrome [Not Recovered/Not Resolved]
  - Cellulitis [Unknown]
  - Clostridium difficile infection [Not Recovered/Not Resolved]
  - Fatigue [Recovered/Resolved]
  - Pain in extremity [Unknown]
  - Depression [Unknown]
  - Drug ineffective [Not Recovered/Not Resolved]
  - Fall [Unknown]
  - Fungal infection [Unknown]
  - Infection [Not Recovered/Not Resolved]

NARRATIVE: CASE EVENT DATE: 2015
